FAERS Safety Report 6298378-X (Version None)
Quarter: 2009Q3

REPORT INFORMATION
  Report Type: 
  Country: None (occurrence: None)
  Receive Date: 20090805
  Receipt Date: 20090723
  Transmission Date: 20100115
  Serious: Yes (Life-Threatening, Hospitalization)
  Sender: FDA-Public Use
  Company Number: AU-GENENTECH-285475

PATIENT
  Sex: Female

DRUGS (10)
  1. BEVACIZUMAB [Suspect]
     Indication: BREAST CANCER
     Dosage: 960 MG, Q3W
     Route: 042
     Dates: start: 20090213, end: 20090608
  2. ADRIAMYCIN RDF [Suspect]
     Indication: BREAST CANCER
     Dosage: 100 MG, Q3W
     Route: 042
     Dates: start: 20090213
  3. CYCLOPHOSPHAMIDE [Suspect]
     Indication: BREAST CANCER
     Dosage: 1000 MG, Q3W
     Route: 042
     Dates: start: 20090213
  4. OLMETEC [Concomitant]
     Indication: DRUG USE FOR UNKNOWN INDICATION
     Dosage: UNK
     Dates: start: 20070101
  5. LOVAN [Concomitant]
     Indication: DRUG USE FOR UNKNOWN INDICATION
     Dosage: UNK
     Dates: start: 20070101
  6. FRUSEMIDE [Concomitant]
     Indication: DRUG USE FOR UNKNOWN INDICATION
     Dosage: UNK
     Dates: start: 20090615
  7. PERINDOPRIL [Concomitant]
     Indication: DRUG USE FOR UNKNOWN INDICATION
     Dosage: UNK
     Dates: start: 20090621
  8. DIGOXIN [Concomitant]
     Indication: DRUG USE FOR UNKNOWN INDICATION
     Dosage: UNK
     Dates: start: 20090704, end: 20090715
  9. SPIRONOLACTONE [Concomitant]
     Indication: DRUG USE FOR UNKNOWN INDICATION
     Dosage: UNK
     Dates: start: 20090615, end: 20090715
  10. CARVEDILOL [Concomitant]
     Indication: DRUG USE FOR UNKNOWN INDICATION
     Dosage: UNK
     Dates: start: 20090619, end: 20090716

REACTIONS (3)
  - CARDIAC FAILURE [None]
  - FEBRILE NEUTROPENIA [None]
  - SYNCOPE [None]
